FAERS Safety Report 10138932 (Version 1)
Quarter: 2014Q2

REPORT INFORMATION
  Report Type: Spontaneous
  Country: US (occurrence: US)
  Receive Date: 20140429
  Receipt Date: 20140429
  Transmission Date: 20141212
  Serious: Yes (Life-Threatening, Hospitalization, Other)
  Sender: FDA-Public Use
  Company Number: US-ACTAVIS-2014-08103

PATIENT
  Age: 47 Year
  Sex: Female

DRUGS (5)
  1. CLOZAPINE (UNKNOWN) [Suspect]
     Indication: SCHIZOPHRENIA
     Dosage: 100 MG, QPM
     Route: 065
  2. CITALOPRAM HYDROBROMIDE (WATSON LABORATORIES) [Suspect]
     Indication: SCHIZOPHRENIA
     Dosage: 10 MG, DAILY
     Route: 065
  3. ONDANSETRON (UNKNOWN) [Suspect]
     Indication: NAUSEA
     Dosage: UNK
     Route: 065
  4. METOCLOPRAMIDE HYDROCHLORIDE (WATSON LABORATORIES) [Suspect]
     Indication: NAUSEA
     Dosage: UNK
     Route: 065
  5. PROMETHAZINE HCL [Concomitant]
     Indication: NAUSEA
     Dosage: UNK
     Route: 065

REACTIONS (5)
  - Serotonin syndrome [Recovered/Resolved]
  - Drug withdrawal syndrome [Recovered/Resolved]
  - Salivary hypersecretion [Recovered/Resolved]
  - Incorrect drug administration duration [Unknown]
  - Circumstance or information capable of leading to medication error [Unknown]
